FAERS Safety Report 6182307-3 (Version None)
Quarter: 2009Q2

REPORT INFORMATION
  Report Type: 
  Country: None (occurrence: None)
  Receive Date: 20090507
  Receipt Date: 20090430
  Transmission Date: 20091009
  Serious: Yes (Other)
  Sender: FDA-Public Use
  Company Number: AU-PFIZER INC-2009185298

PATIENT

DRUGS (1)
  1. CHAMPIX [Suspect]
     Dates: start: 20090313

REACTIONS (4)
  - ANAPHYLACTIC REACTION [None]
  - HYPOAESTHESIA FACIAL [None]
  - MOUTH ULCERATION [None]
  - SWELLING FACE [None]
